FAERS Safety Report 9972824 (Version 2)
Quarter: 2014Q3

REPORT INFORMATION
  Report Type: Report from Study
  Country: IT (occurrence: IT)
  Receive Date: 20140306
  Receipt Date: 20140812
  Transmission Date: 20150326
  Serious: Yes (Hospitalization)
  Sender: FDA-Public Use
  Company Number: PHHO2014IT003179

PATIENT

DRUGS (3)
  1. EVEROLIMUS [Suspect]
     Active Substance: EVEROLIMUS
     Indication: HEART TRANSPLANT
     Dosage: 0.50 MG, BID
     Dates: start: 20110702
  2. CARDIOASPIRIN [Concomitant]
     Active Substance: ASPIRIN
  3. NEORAL [Suspect]
     Active Substance: CYCLOSPORINE
     Indication: HEART TRANSPLANT
     Dosage: 100 MG, BID
     Dates: start: 20110702

REACTIONS (1)
  - Pericardial effusion [Recovered/Resolved]

NARRATIVE: CASE EVENT DATE: 20110916
